FAERS Safety Report 8372711-7 (Version None)
Quarter: 2012Q2

REPORT INFORMATION
  Report Type: 
  Country: None (occurrence: None)
  Receive Date: 20120521
  Receipt Date: 20120518
  Transmission Date: 20120825
  Serious: Yes (Death, Other)
  Sender: FDA-Public Use
  Company Number: DE-B.I. PHARMACEUTICALS,INC./RIDGEFIELD-2011-DE-06667DE

PATIENT
  Sex: Male
  Weight: 74 kg

DRUGS (12)
  1. PRADAXA [Suspect]
     Indication: ATRIAL FIBRILLATION
     Dosage: 220 NR
  2. MARCUMAR [Concomitant]
  3. BISOPROLOL FUMARATE [Concomitant]
     Dosage: 1 ANZ
  4. ALLOPURINOL [Concomitant]
     Dosage: 0.5 ANZ
  5. TORSEMIDE [Concomitant]
     Dosage: 0.5 ANZ
  6. FOSTER [Concomitant]
  7. SPIRIVA [Concomitant]
  8. SIMVASTATIN [Concomitant]
     Dosage: 0.5 ANZ
  9. TRIAMTEREN HCT [Concomitant]
     Dosage: 1 ANZ
  10. TAMSULOSIN HCL [Concomitant]
     Dosage: 1 ANZ
  11. LISINOPRIL [Concomitant]
     Dosage: 0.5 ANZ
  12. ACC 600 [Concomitant]
     Dosage: 1 ANZ

REACTIONS (3)
  - MELAENA [None]
  - GASTROINTESTINAL HAEMORRHAGE [None]
  - DEATH [None]
